FAERS Safety Report 6376122-5 (Version None)
Quarter: 2009Q3

REPORT INFORMATION
  Report Type: 
  Country: None (occurrence: None)
  Receive Date: 20090918
  Receipt Date: 20090915
  Transmission Date: 20100115
  Serious: Yes (Death, Hospitalization)
  Sender: FDA-Public Use
  Company Number: ENTC2009-0306

PATIENT
  Age: 62 Year
  Sex: Male

DRUGS (1)
  1. STALEVO 100 [Suspect]
     Indication: PARKINSON'S DISEASE
     Dosage: 50/12.5/200 MG, 1 DF/DAY ORAL
     Route: 048
     Dates: start: 20070101

REACTIONS (4)
  - BALANCE DISORDER [None]
  - FALL [None]
  - RESPIRATORY ARREST [None]
  - TRAUMATIC BRAIN INJURY [None]
